FAERS Safety Report 5707862-6 (Version None)
Quarter: 2008Q2

REPORT INFORMATION
  Report Type: 
  Country: None (occurrence: None)
  Receive Date: 20080414
  Receipt Date: 20080404
  Transmission Date: 20081010
  Serious: Yes (Other)
  Sender: FDA-Public Use
  Company Number: 100#08#2008-01823

PATIENT
  Age: 52 Year
  Sex: Female

DRUGS (2)
  1. CARBOPLATIN [Suspect]
     Indication: VAGINAL CANCER
  2. TAXOL [Suspect]
     Indication: VAGINAL CANCER

REACTIONS (5)
  - DISEASE PROGRESSION [None]
  - DRUG INEFFECTIVE [None]
  - GENERALISED OEDEMA [None]
  - METASTASES TO LIVER [None]
  - RHABDOMYOLYSIS [None]
